FAERS Safety Report 10242114 (Version 1)
Quarter: 2014Q2

REPORT INFORMATION
  Report Type: Spontaneous
  Country: BR (occurrence: BR)
  Receive Date: 20140617
  Receipt Date: 20140617
  Transmission Date: 20141212
  Serious: Yes (Hospitalization)
  Sender: FDA-Public Use
  Company Number: BR-BAYER-2014-089178

PATIENT
  Age: 68 Year
  Sex: Female

DRUGS (11)
  1. ACETYLSALICYLIC ACID (} 100 MG) [Suspect]
     Indication: ACUTE MYOCARDIAL INFARCTION
     Dosage: UNK
     Dates: start: 201012
  2. OMEPRAZOLE [Interacting]
     Dosage: UNK
     Dates: start: 201012
  3. METHOTREXATE [Interacting]
     Indication: RHEUMATOID ARTHRITIS
     Dosage: 10 MG, OW
     Dates: start: 200801, end: 201101
  4. LEFLUNOMIDE [Suspect]
     Indication: RHEUMATOID ARTHRITIS
     Dosage: 20 MG,DAILY
     Dates: start: 201001, end: 201101
  5. LEFLUNOMIDE [Suspect]
     Indication: SYNOVITIS
  6. CLOPIDOGREL [Concomitant]
     Indication: ACUTE MYOCARDIAL INFARCTION
     Dosage: UNK
     Dates: start: 201012
  7. ISOSORBIDE [Concomitant]
     Indication: ACUTE MYOCARDIAL INFARCTION
     Dosage: UNK
     Dates: start: 201012
  8. SIMVASTATIN [Concomitant]
     Indication: ACUTE MYOCARDIAL INFARCTION
     Dosage: UNK
     Dates: start: 201012
  9. PREDNISONE [Concomitant]
     Dosage: DAILY DOSE 10 MG
     Dates: start: 201001, end: 201101
  10. PREDNISONE [Concomitant]
     Dosage: 20 MG /DAY
     Dates: start: 201101
  11. PREDNISONE [Concomitant]
     Dosage: DAILY DOSE 5 MG
     Dates: start: 201101

REACTIONS (3)
  - Leukopenia [Recovered/Resolved]
  - Pyrexia [None]
  - Labelled drug-drug interaction medication error [None]
